FAERS Safety Report 5749485-9 (Version None)
Quarter: 2008Q2

REPORT INFORMATION
  Report Type: 
  Country: None (occurrence: None)
  Receive Date: 20080527
  Receipt Date: 20080515
  Transmission Date: 20081010
  Serious: Yes (Death, Life-Threatening)
  Sender: FDA-Public Use
  Company Number: B0437773A

PATIENT
  Age: 93 Year
  Sex: Male
  Weight: 60 kg

DRUGS (7)
  1. ARIXTRA [Suspect]
     Dosage: 2.5MG PER DAY
     Route: 058
     Dates: start: 20060708, end: 20060819
  2. PLAVIX [Suspect]
     Dosage: 1TAB PER DAY
     Route: 048
     Dates: start: 20060713
  3. LOVENOX [Suspect]
     Dosage: 40IU PER DAY
     Dates: start: 20060705, end: 20060707
  4. TRIMEBUTINE [Concomitant]
  5. SEROPRAM [Concomitant]
     Dosage: 10MG PER DAY
  6. KETOPROFEN [Concomitant]
     Dosage: 50MG PER DAY
     Route: 065
     Dates: start: 20060707, end: 20060707
  7. ANALGESIA [Concomitant]
     Indication: PAIN PROPHYLAXIS
     Route: 065

REACTIONS (4)
  - ANAEMIA [None]
  - FAILURE TO THRIVE [None]
  - INTENTIONAL DRUG MISUSE [None]
  - POST PROCEDURAL HAEMORRHAGE [None]
